FAERS Safety Report 6341318-5 (Version None)
Quarter: 2009Q3

REPORT INFORMATION
  Report Type: 
  Country: None (occurrence: None)
  Receive Date: 20090904
  Receipt Date: 20090811
  Transmission Date: 20100115
  Serious: No
  Sender: FDA-Public Use
  Company Number: BR-ROCHE-650548

PATIENT
  Sex: Female
  Weight: 26.5 kg

DRUGS (7)
  1. TAMIFLU [Suspect]
     Dosage: ROUTE ORAL, DOSAGE 12 MG/ML
     Route: 050
     Dates: start: 20090807, end: 20090807
  2. TAMIFLU [Suspect]
     Dosage: ROUTE: GASTROSTOMY TUBE, DOSAGE 12 MG/ML
     Route: 050
     Dates: start: 20090808, end: 20090808
  3. VALPROIC ACID [Concomitant]
     Indication: CONVULSION
     Route: 048
  4. BACLOFEN [Concomitant]
     Route: 048
  5. CARBAMAZEPINE [Concomitant]
     Indication: CONVULSION
     Route: 048
  6. MOTILIUM [Concomitant]
     Indication: PROPHYLAXIS
     Route: 048
  7. CLAVULIN BD [Concomitant]
     Indication: ANTIBIOTIC THERAPY
     Route: 048

REACTIONS (2)
  - DRUG ADMINISTRATION ERROR [None]
  - NO ADVERSE EVENT [None]
